FAERS Safety Report 7368476-8 (Version None)
Quarter: 2011Q1

REPORT INFORMATION
  Report Type: 
  Country: None (occurrence: None)
  Receive Date: 20110314
  Receipt Date: 20110301
  Transmission Date: 20110831
  Serious: Yes (Hospitalization, Other)
  Sender: FDA-Public Use
  Company Number: FK201100346

PATIENT

DRUGS (1)
  1. HEPARIN SODIUM [Suspect]
     Indication: PRODUCT USED FOR UNKNOWN INDICATION
     Dosage: 5000 USP UNITS, 1 IN 12 HR, SUBCUTANEOUS
     Route: 058

REACTIONS (3)
  - DIZZINESS [None]
  - HYPOTENSION [None]
  - DRUG HYPERSENSITIVITY [None]
